FAERS Safety Report 15753427 (Version 2)
Quarter: 2018Q4

REPORT INFORMATION
  Report Type: Spontaneous
  Country: US (occurrence: US)
  Receive Date: 20181222
  Receipt Date: 20181222
  Transmission Date: 20190205
  Serious: No
  Sender: FDA-Public Use
  Company Number: US-MALLINCKRODT-T201801649

PATIENT
  Sex: Female
  Weight: 47 kg

DRUGS (2)
  1. KETOROLAC [Concomitant]
     Active Substance: KETOROLAC\KETOROLAC TROMETHAMINE
     Indication: PAIN
     Dosage: UNK
  2. FENTANYL TRANSDERMAL SYSTEM [Suspect]
     Active Substance: FENTANYL
     Indication: PAIN
     Dosage: 50 MCG, EVERY 3 DAYS
     Route: 062
     Dates: start: 201802, end: 201803

REACTIONS (8)
  - Contusion [Recovered/Resolved]
  - Pruritus [Unknown]
  - Feeding intolerance [Unknown]
  - Hypersomnia [Unknown]
  - Fatigue [Unknown]
  - Feeling abnormal [Unknown]
  - Rash papular [Recovering/Resolving]
  - Product adhesion issue [Unknown]
